FAERS Safety Report 5801717-4 (Version None)
Quarter: 2008Q3

REPORT INFORMATION
  Report Type: 
  Country: None (occurrence: None)
  Receive Date: 20080707
  Receipt Date: 20080623
  Transmission Date: 20090109
  Serious: Yes (Other)
  Sender: FDA-Public Use
  Company Number: B0527504A

PATIENT
  Age: 58 Year
  Sex: Male

DRUGS (1)
  1. ALBENDAZOLE [Suspect]
     Route: 065

REACTIONS (4)
  - BICYTOPENIA [None]
  - LEUKOPENIA [None]
  - NORMOCHROMIC NORMOCYTIC ANAEMIA [None]
  - THROMBOCYTOPENIA [None]
